FAERS Safety Report 18239037 (Version 1)
Quarter: 2020Q3

REPORT INFORMATION
  Report Type: Spontaneous
  Country: US (occurrence: US)
  Receive Date: 20200907
  Receipt Date: 20200907
  Transmission Date: 20201103
  Serious: No
  Sender: FDA-Public Use
  Company Number: US-SA-2020SA230073

PATIENT

DRUGS (17)
  1. DUPIXENT [Suspect]
     Active Substance: DUPILUMAB
     Dosage: 300 MG, QOW
     Route: 058
     Dates: start: 20180526
  2. HYDROXYZINE HCL [Concomitant]
     Active Substance: HYDROXYZINE HYDROCHLORIDE
  3. FLUOCINONIDE. [Concomitant]
     Active Substance: FLUOCINONIDE
  4. MUPIROCIN. [Concomitant]
     Active Substance: MUPIROCIN
  5. WIXELA INHUB [Concomitant]
     Active Substance: FLUTICASONE PROPIONATE\SALMETEROL XINAFOATE
     Dosage: STRENGTH: 250/50
  6. ALBUTEROL HFA [Concomitant]
     Active Substance: ALBUTEROL SULFATE
  7. CLOBETASOL [Concomitant]
     Active Substance: CLOBETASOL
  8. BACTRIM DS [Concomitant]
     Active Substance: SULFAMETHOXAZOLE\TRIMETHOPRIM
     Dosage: STRENGTH: 800/160
  9. ETODOLAC. [Concomitant]
     Active Substance: ETODOLAC
  10. LOPROX [Concomitant]
     Active Substance: CICLOPIROX\CICLOPIROX OLAMINE
  11. BETAMETHASONE DIPROPIONATE. [Concomitant]
     Active Substance: BETAMETHASONE DIPROPIONATE
  12. PROAIR HFA [Concomitant]
     Active Substance: ALBUTEROL SULFATE
  13. ADVAIR HFA [Concomitant]
     Active Substance: FLUTICASONE PROPIONATE\SALMETEROL XINAFOATE
     Dosage: STRENGTH: 250/50
  14. TACROLIMUS. [Concomitant]
     Active Substance: TACROLIMUS
  15. DESONIDE. [Concomitant]
     Active Substance: DESONIDE
  16. ALEVE [Concomitant]
     Active Substance: NAPROXEN SODIUM
  17. MINOCYCLINE [Concomitant]
     Active Substance: MINOCYCLINE HYDROCHLORIDE

REACTIONS (1)
  - Condition aggravated [Not Recovered/Not Resolved]
